FAERS Safety Report 6736147-4 (Version None)
Quarter: 2010Q2

REPORT INFORMATION
  Report Type: 
  Country: None (occurrence: None)
  Receive Date: 20100521
  Receipt Date: 20100518
  Transmission Date: 20101027
  Serious: Yes (Death)
  Sender: FDA-Public Use
  Company Number: US-RB-009489-10

PATIENT
  Sex: Male

DRUGS (2)
  1. SUBUTEX [Suspect]
     Route: 060
     Dates: start: 20100301, end: 20100509
  2. SUBOXONE [Suspect]
     Route: 060
     Dates: start: 20090201, end: 20100301

REACTIONS (1)
  - MYOCARDIAL INFARCTION [None]
